FAERS Safety Report 23157600 (Version 3)
Quarter: 2023Q4

REPORT INFORMATION
  Report Type: Report from Study
  Country: US (occurrence: US)
  Receive Date: 20231108
  Receipt Date: 20231218
  Transmission Date: 20240110
  Serious: Yes (Other)
  Sender: FDA-Public Use
  Company Number: US-ALXN-A202308896

PATIENT
  Sex: Male

DRUGS (1)
  1. ULTOMIRIS [Suspect]
     Active Substance: RAVULIZUMAB-CWVZ
     Indication: Myasthenia gravis
     Dosage: UNK
     Route: 065
     Dates: start: 20230706

REACTIONS (20)
  - Central sleep apnoea syndrome [Unknown]
  - Hypoacusis [Unknown]
  - Feeling abnormal [Not Recovered/Not Resolved]
  - Confusional state [Recovering/Resolving]
  - Muscle discomfort [Unknown]
  - Lethargy [Recovered/Resolved]
  - Feeling drunk [Recovered/Resolved]
  - Visual impairment [Unknown]
  - Chronic obstructive pulmonary disease [Unknown]
  - Cardiac disorder [Unknown]
  - Blood pressure increased [Unknown]
  - Abdominal discomfort [Unknown]
  - Ligament sprain [Unknown]
  - Lung disorder [Unknown]
  - Feeling abnormal [Unknown]
  - Therapy non-responder [Unknown]
  - Dyspnoea [Not Recovered/Not Resolved]
  - Dyspepsia [Unknown]
  - Fatigue [Not Recovered/Not Resolved]
  - Diarrhoea [Recovering/Resolving]

NARRATIVE: CASE EVENT DATE: 20230706
